FAERS Safety Report 4900536-0 (Version None)
Quarter: 2006Q1

REPORT INFORMATION
  Report Type: 
  Country: None (occurrence: None)
  Receive Date: 20060127
  Receipt Date: 20051111
  Transmission Date: 20060701
  Serious: Yes (Death)
  Sender: FDA-Public Use
  Company Number: CLOF-10148

PATIENT
  Age: 67 Year
  Sex: Female

DRUGS (24)
  1. CLOFARABINE [Suspect]
     Indication: ACUTE MYELOID LEUKAEMIA
     Dosage: 66.9 MG QD X 5 IV
     Route: 042
     Dates: start: 20050811, end: 20050815
  2. CYTARABINE [Suspect]
     Indication: ACUTE MYELOID LEUKAEMIA
     Dosage: 44.6 MG SC
     Route: 058
     Dates: start: 20050811, end: 20050824
  3. VITAMIN K [Concomitant]
  4. AMICAR [Concomitant]
  5. K-DUR 10 [Concomitant]
  6. AMBISOME [Concomitant]
  7. HYDROCORTISONE [Concomitant]
  8. POTASSIUM CHLORIDE [Concomitant]
  9. MAGNESIUM SULFATE [Concomitant]
  10. CLOTRIMAZOLE [Concomitant]
  11. LASIX [Concomitant]
  12. BENADRYL [Concomitant]
  13. CEFEPIME [Concomitant]
  14. DDVAP [Concomitant]
  15. ZOSYN [Concomitant]
  16. TYLENOL (CAPLET) [Concomitant]
  17. REGULAR INSULIN [Concomitant]
  18. VANCOMYCIN [Concomitant]
  19. MEROPENEM [Concomitant]
  20. SOLU-MEDROL [Concomitant]
  21. NEUPOGEN [Concomitant]
  22. SYNTHROID [Concomitant]
  23. VALTREX [Concomitant]
  24. PRILOSEC [Concomitant]

REACTIONS (3)
  - DISEASE PROGRESSION [None]
  - MULTI-ORGAN FAILURE [None]
  - PLATELET COUNT DECREASED [None]
